FAERS Safety Report 24248346 (Version 2)
Quarter: 2024Q4

REPORT INFORMATION
  Report Type: Spontaneous
  Country: BR (occurrence: BR)
  Receive Date: 20240826
  Receipt Date: 20241002
  Transmission Date: 20250115
  Serious: Yes (Other)
  Sender: TAKEDA
  Company Number: BR-TAKEDA-2024TUS083133

PATIENT
  Sex: Male

DRUGS (1)
  1. LISDEXAMFETAMINE DIMESYLATE [Suspect]
     Active Substance: LISDEXAMFETAMINE DIMESYLATE
     Indication: Product used for unknown indication
     Dosage: UNK
     Route: 065

REACTIONS (7)
  - Schizophrenia [Unknown]
  - Product use issue [Unknown]
  - Product colour issue [Unknown]
  - Product lot number issue [Unknown]
  - Adulterated product [Unknown]
  - Product size issue [Unknown]
  - Inability to afford medication [Unknown]
